FAERS Safety Report 8198023-2 (Version None)
Quarter: 2012Q1

REPORT INFORMATION
  Report Type: 
  Country: None (occurrence: None)
  Receive Date: 20120309
  Receipt Date: 20120305
  Transmission Date: 20120608
  Serious: No
  Sender: FDA-Public Use
  Company Number: US-UCBSA-019255

PATIENT
  Age: 28 Year
  Sex: Male
  Weight: 76.3 kg

DRUGS (1)
  1. LACOSAMIDE [Suspect]
     Indication: EPILEPSY
     Route: 048
     Dates: start: 20080925, end: 20100922

REACTIONS (1)
  - BRADYCARDIA [None]
